FAERS Safety Report 8576056-1 (Version None)
Quarter: 2012Q3

REPORT INFORMATION
  Report Type: 
  Country: None (occurrence: None)
  Receive Date: 20120807
  Receipt Date: 20120803
  Transmission Date: 20120928
  Serious: No
  Sender: FDA-Public Use
  Company Number: US-TEVA-352140USA

PATIENT
  Sex: Male
  Weight: 95.34 kg

DRUGS (2)
  1. PROAIR HFA [Suspect]
     Indication: ASTHMA
     Dosage: EVERY 4 HOURS AS NEEDED
     Route: 055
  2. SPIRIVA [Concomitant]
     Indication: ASTHMA
     Route: 055

REACTIONS (2)
  - BACK PAIN [None]
  - DYSPHONIA [None]
